FAERS Safety Report 25931884 (Version 1)
Quarter: 2025Q4

REPORT INFORMATION
  Report Type: Spontaneous
  Country: EU (occurrence: EU)
  Receive Date: 20251016
  Receipt Date: 20251016
  Transmission Date: 20260118
  Serious: Yes (Hospitalization, Other)
  Sender: ABBVIE
  Company Number: EU-ABBVIE-6503429

PATIENT
  Age: 70 Year

DRUGS (9)
  1. VENETOCLAX [Suspect]
     Active Substance: VENETOCLAX
     Indication: Chronic lymphocytic leukaemia
     Route: 048
     Dates: end: 202306
  2. ACALABRUTINIB [Suspect]
     Active Substance: ACALABRUTINIB
     Indication: Chronic lymphocytic leukaemia
     Route: 065
  3. RITUXIMAB [Suspect]
     Active Substance: RITUXIMAB
     Indication: Chronic lymphocytic leukaemia
     Route: 065
  4. RITUXIMAB [Suspect]
     Active Substance: RITUXIMAB
     Indication: Chronic lymphocytic leukaemia
     Dosage: BENDAMUSTINE + RITUXIMAB (CYCLE 1: 75%)
     Route: 065
     Dates: start: 202503
  5. ZANUBRUTINIB [Suspect]
     Active Substance: ZANUBRUTINIB
     Indication: Chronic lymphocytic leukaemia
     Route: 065
  6. BENDAMUSTINE [Concomitant]
     Active Substance: BENDAMUSTINE
     Indication: Chronic lymphocytic leukaemia
     Route: 065
     Dates: start: 202503
  7. PIRTOBRUTINIB [Suspect]
     Active Substance: PIRTOBRUTINIB
     Indication: Chronic lymphocytic leukaemia
     Route: 065
     Dates: start: 202505
  8. IBRUTINIB [Suspect]
     Active Substance: IBRUTINIB
     Indication: Chronic lymphocytic leukaemia
     Route: 048
  9. CHLORAMBUCIL [Suspect]
     Active Substance: CHLORAMBUCIL
     Indication: Chronic lymphocytic leukaemia
     Route: 065

REACTIONS (13)
  - Pancytopenia [Recovering/Resolving]
  - Palpitations [Not Recovered/Not Resolved]
  - Therapeutic product effect decreased [Unknown]
  - Splenomegaly [Recovering/Resolving]
  - Drug eruption [Unknown]
  - Anaemia [Not Recovered/Not Resolved]
  - Rash [Recovering/Resolving]
  - Leukocytosis [Unknown]
  - Thrombocytosis [Unknown]
  - Lymphadenopathy [Recovering/Resolving]
  - General physical health deterioration [Unknown]
  - Pneumonia [Unknown]
  - Blood immunoglobulin G abnormal [Unknown]

NARRATIVE: CASE EVENT DATE: 20151001
